FAERS Safety Report 10754013 (Version 1)
Quarter: 2015Q1

REPORT INFORMATION
  Report Type: Spontaneous
  Country: US (occurrence: None)
  Receive Date: 20150129
  Receipt Date: 20150129
  Transmission Date: 20150721
  Serious: Yes (Disabling)
  Sender: FDA-Public Use
  Company Number: None

PATIENT
  Age: 57 Year
  Sex: Male
  Weight: 111.13 kg

DRUGS (1)
  1. ATORVASTATIN 20MG [Suspect]
     Active Substance: ATORVASTATIN
     Indication: BLOOD CHOLESTEROL INCREASED
     Dosage: 1 PILL
     Route: 048

REACTIONS (5)
  - Muscle atrophy [None]
  - Myalgia [None]
  - Chromaturia [None]
  - Renal disorder [None]
  - Gait disturbance [None]

NARRATIVE: CASE EVENT DATE: 20150128
